FAERS Safety Report 11526480 (Version 1)
Quarter: 2015Q3

REPORT INFORMATION
  Report Type: Spontaneous
  Country: US (occurrence: US)
  Receive Date: 20150903
  Receipt Date: 20150903
  Transmission Date: 20151125
  Serious: No
  Sender: FDA-Public Use
  Company Number: US-ELI_LILLY_AND_COMPANY-US201310008121

PATIENT
  Sex: Female

DRUGS (2)
  1. CYMBALTA [Suspect]
     Active Substance: DULOXETINE HYDROCHLORIDE
     Indication: ANXIETY
     Dosage: 30 MG, QD
     Route: 065
     Dates: end: 201309
  2. CYMBALTA [Suspect]
     Active Substance: DULOXETINE HYDROCHLORIDE
     Indication: PANIC ATTACK

REACTIONS (22)
  - Dysphagia [Unknown]
  - Muscle tightness [Unknown]
  - Intentional product misuse [Unknown]
  - Paraesthesia [Unknown]
  - Rhinorrhoea [Unknown]
  - Throat irritation [Unknown]
  - Mood altered [Unknown]
  - Malaise [Unknown]
  - Crying [Unknown]
  - Weight increased [Unknown]
  - Feeling abnormal [Not Recovered/Not Resolved]
  - Gastrooesophageal reflux disease [Unknown]
  - Dizziness [Unknown]
  - Irritability [Unknown]
  - Dry throat [Unknown]
  - Tremor [Unknown]
  - Mental impairment [Unknown]
  - Head discomfort [Unknown]
  - Social phobia [Unknown]
  - Disturbance in attention [Unknown]
  - Vomiting [Unknown]
  - Drug withdrawal syndrome [Unknown]
